FAERS Safety Report 10618103 (Version 2)
Quarter: 2015Q1

REPORT INFORMATION
  Report Type: Spontaneous
  Country: US (occurrence: US)
  Receive Date: 20141202
  Receipt Date: 20150213
  Transmission Date: 20150720
  Serious: Yes (Other)
  Sender: FDA-Public Use
  Company Number: US-AMGEN-USASP2014092130

PATIENT
  Age: 50 Year
  Sex: Female

DRUGS (1)
  1. PROLIA [Suspect]
     Active Substance: DENOSUMAB
     Indication: OSTEOPOROSIS POSTMENOPAUSAL
     Dosage: UNK
     Route: 065
     Dates: start: 20140730

REACTIONS (8)
  - Osteonecrosis of jaw [Unknown]
  - Gingival disorder [Not Recovered/Not Resolved]
  - Foot fracture [Recovered/Resolved]
  - Tooth disorder [Unknown]
  - Tooth infection [Unknown]
  - Joint dislocation [Unknown]
  - Toothache [Unknown]
  - Pain in extremity [Not Recovered/Not Resolved]

NARRATIVE: CASE EVENT DATE: 2014
